FAERS Safety Report 22660306 (Version 1)
Quarter: 2023Q2

REPORT INFORMATION
  Report Type: Spontaneous
  Country: IT (occurrence: IT)
  Receive Date: 20230630
  Receipt Date: 20230630
  Transmission Date: 20230722
  Serious: No
  Sender: FDA-Public Use
  Company Number: IT-JAZZ PHARMACEUTICALS-2023-IT-012788

PATIENT
  Age: 4 Year

DRUGS (1)
  1. CANNABIDIOL [Suspect]
     Active Substance: CANNABIDIOL
     Indication: Severe myoclonic epilepsy of infancy
     Dosage: UNK
     Dates: start: 202205

REACTIONS (1)
  - Therapeutic response unexpected [Unknown]
